FAERS Safety Report 7023602-5 (Version None)
Quarter: 2010Q3

REPORT INFORMATION
  Report Type: 
  Country: None (occurrence: None)
  Receive Date: 20100930
  Receipt Date: 20100930
  Transmission Date: 20110219
  Serious: Yes (Life-Threatening, Hospitalization)
  Sender: FDA-Public Use
  Company Number: None

PATIENT
  Sex: Female
  Weight: 85.7298 kg

DRUGS (2)
  1. DEPAKOTE [Suspect]
     Indication: MIGRAINE
     Dosage: ONE DAILY PO
     Route: 048
     Dates: start: 20080317, end: 20090812
  2. TOPIRAMATE [Suspect]
     Indication: MIGRAINE
     Dosage: ONE DAILY PO
     Route: 048
     Dates: start: 20090722, end: 20090816

REACTIONS (23)
  - ABDOMINAL PAIN [None]
  - ALCOHOLIC LIVER DISEASE [None]
  - ASTHENIA [None]
  - ATAXIA [None]
  - BRAIN SCAN ABNORMAL [None]
  - CONFUSIONAL STATE [None]
  - DEHYDRATION [None]
  - DIZZINESS [None]
  - ENCEPHALOPATHY [None]
  - HEADACHE [None]
  - HYPERAMMONAEMIA [None]
  - HYPERHIDROSIS [None]
  - HYPOAESTHESIA [None]
  - LETHARGY [None]
  - MENTAL STATUS CHANGES [None]
  - NAUSEA [None]
  - NEUROTOXICITY [None]
  - PALPITATIONS [None]
  - PARAESTHESIA [None]
  - PREGNANCY [None]
  - SYNCOPE [None]
  - VISION BLURRED [None]
  - VOMITING [None]
